FAERS Safety Report 5660308-9 (Version None)
Quarter: 2008Q1

REPORT INFORMATION
  Report Type: 
  Country: None (occurrence: None)
  Receive Date: 20080306
  Receipt Date: 20080220
  Transmission Date: 20080703
  Serious: Yes (Hospitalization)
  Sender: FDA-Public Use
  Company Number: S08-CHN-00806-01

PATIENT
  Age: 26 Year
  Sex: Female

DRUGS (3)
  1. ESCITALOPRAM OXALATE [Suspect]
     Indication: DEPRESSION
     Dosage: 700 MG;ONCE;PO;10 MG;QD;PO
     Route: 048
     Dates: start: 20070901, end: 20080217
  2. ESCITALOPRAM OXALATE [Suspect]
     Indication: DEPRESSION
     Dosage: 700 MG;ONCE;PO;10 MG;QD;PO
     Route: 048
     Dates: start: 20080218, end: 20080218
  3. DIAZEPAM [Suspect]
     Dosage: 10 TABLET ONCE PO
     Route: 048
     Dates: start: 20080218, end: 20080218

REACTIONS (2)
  - MULTIPLE DRUG OVERDOSE [None]
  - SHOCK [None]
